FAERS Safety Report 14854949 (Version 2)
Quarter: 2019Q2

REPORT INFORMATION
  Report Type: Spontaneous
  Country: US (occurrence: US)
  Receive Date: 20180507
  Receipt Date: 20190509
  Transmission Date: 20190711
  Serious: No
  Sender: FDA-Public Use
  Company Number: US-ROCHE-1915110

PATIENT
  Age: 67 Year
  Sex: Female

DRUGS (6)
  1. BENZONATATE. [Concomitant]
     Active Substance: BENZONATATE
     Route: 065
  2. ESBRIET [Suspect]
     Active Substance: PIRFENIDONE
     Indication: IDIOPATHIC PULMONARY FIBROSIS
     Route: 048
     Dates: start: 20170228
  3. MULTIVITAMIN [VITAMINS NOS] [Concomitant]
     Route: 065
  4. ESBRIET [Suspect]
     Active Substance: PIRFENIDONE
     Dosage: 3 CAPSULES
     Route: 048
     Dates: start: 20170302
  5. LOSARTAN POTASSIUM. [Concomitant]
     Active Substance: LOSARTAN POTASSIUM
     Route: 065
  6. ALEVE [Concomitant]
     Active Substance: NAPROXEN SODIUM
     Route: 065

REACTIONS (3)
  - Fatigue [Not Recovered/Not Resolved]
  - Cough [Not Recovered/Not Resolved]
  - Decreased appetite [Not Recovered/Not Resolved]

NARRATIVE: CASE EVENT DATE: 20170302
